FAERS Safety Report 15793811 (Version 1)
Quarter: 2019Q1

REPORT INFORMATION
  Report Type: Spontaneous
  Country: US (occurrence: US)
  Receive Date: 20190105
  Receipt Date: 20190105
  Transmission Date: 20190417
  Serious: No
  Sender: FDA-Public Use
  Company Number: None

PATIENT
  Age: 39 Year
  Sex: Female

DRUGS (1)
  1. LARIN 24 FE [Suspect]
     Active Substance: ETHINYL ESTRADIOL\NORETHINDRONE ACETATE
     Indication: MENSTRUAL CYCLE MANAGEMENT
     Dosage: ?          QUANTITY:24 TABLET(S);?
     Route: 048
     Dates: start: 20181110, end: 20181230

REACTIONS (6)
  - Feeling abnormal [None]
  - Gait inability [None]
  - Hypophagia [None]
  - Nausea [None]
  - Headache [None]
  - Asthenia [None]

NARRATIVE: CASE EVENT DATE: 20181110
